FAERS Safety Report 23994827 (Version 1)
Quarter: 2024Q2

REPORT INFORMATION
  Report Type: Spontaneous
  Country: FR (occurrence: FR)
  Receive Date: 20240620
  Receipt Date: 20240620
  Transmission Date: 20240716
  Serious: Yes (Hospitalization)
  Sender: FDA-Public Use
  Company Number: None

PATIENT
  Age: 65 Year
  Sex: Female
  Weight: 125 kg

DRUGS (3)
  1. CLINDAMYCIN PHOSPHATE [Suspect]
     Active Substance: CLINDAMYCIN PHOSPHATE
     Indication: Dermo-hypodermitis
     Dosage: 900 MG 3X/DAY
     Route: 042
     Dates: start: 20240522, end: 20240529
  2. AUGMENTIN [Suspect]
     Active Substance: AMOXICILLIN\CLAVULANATE POTASSIUM
     Indication: Dermo-hypodermitis
     Dosage: 2G 3X/DAY
     Route: 042
     Dates: start: 20240524, end: 20240529
  3. AMOXICILLIN [Suspect]
     Active Substance: AMOXICILLIN
     Indication: Dermo-hypodermitis
     Dosage: 2 G 3X/DAY
     Route: 042
     Dates: start: 20240522, end: 20240524

REACTIONS (2)
  - Rash maculo-papular [Recovering/Resolving]
  - Face oedema [Unknown]

NARRATIVE: CASE EVENT DATE: 20240529
